FAERS Safety Report 25684117 (Version 1)
Quarter: 2025Q3

REPORT INFORMATION
  Report Type: Spontaneous
  Country: US (occurrence: US)
  Receive Date: 20250815
  Receipt Date: 20250815
  Transmission Date: 20251021
  Serious: No
  Sender: SANOFI AVENTIS
  Company Number: US-SA-2025SA236677

PATIENT
  Age: 38 Year
  Sex: Male

DRUGS (1)
  1. FABRAZYME [Suspect]
     Active Substance: AGALSIDASE BETA

REACTIONS (3)
  - Globotriaosylsphingosine increased [Unknown]
  - Drug specific antibody present [Unknown]
  - Neutralising antibodies positive [Recovering/Resolving]

NARRATIVE: CASE EVENT DATE: 20240724
